FAERS Safety Report 22799789 (Version 3)
Quarter: 2023Q4

REPORT INFORMATION
  Report Type: Report from Study
  Country: US (occurrence: US)
  Receive Date: 20230808
  Receipt Date: 20231005
  Transmission Date: 20240110
  Serious: Yes (Death)
  Sender: FDA-Public Use
  Company Number: US-ABBVIE-5358963

PATIENT
  Age: 59 Year
  Sex: Male

DRUGS (2)
  1. IMBRUVICA [Suspect]
     Active Substance: IBRUTINIB
     Indication: Waldenstrom^s macroglobulinaemia
     Dosage: TIME INTERVAL: 0.33333333 DAYS: THREE CAPSULES
     Route: 048
     Dates: start: 20221001
  2. IMBRUVICA [Suspect]
     Active Substance: IBRUTINIB
     Indication: Waldenstrom^s macroglobulinaemia
     Dosage: TWO CAPSULES
     Route: 048
     Dates: end: 202307

REACTIONS (6)
  - Death [Fatal]
  - Fatigue [Unknown]
  - Nail disorder [Recovered/Resolved]
  - Nervous system disorder [Not Recovered/Not Resolved]
  - Hypertension [Recovered/Resolved]
  - Herpes zoster [Recovered/Resolved]

NARRATIVE: CASE EVENT DATE: 20221224
